FAERS Safety Report 7646572-5 (Version None)
Quarter: 2011Q3

REPORT INFORMATION
  Report Type: 
  Country: None (occurrence: None)
  Receive Date: 20110801
  Receipt Date: 20110722
  Transmission Date: 20111222
  Serious: Yes (Other)
  Sender: FDA-Public Use
  Company Number: GT-US-EMD SERONO, INC.-7073338

PATIENT
  Sex: Female
  Weight: 24.09 kg

DRUGS (1)
  1. SAIZEN [Suspect]
     Indication: PRODUCT USED FOR UNKNOWN INDICATION
     Route: 058
     Dates: start: 20090801

REACTIONS (3)
  - THIRST [None]
  - LIP DRY [None]
  - BLOOD GLUCOSE INCREASED [None]
